FAERS Safety Report 5352782-2 (Version None)
Quarter: 2007Q2

REPORT INFORMATION
  Report Type: 
  Country: None (occurrence: None)
  Receive Date: 20070611
  Receipt Date: 20070531
  Transmission Date: 20071010
  Serious: No
  Sender: FDA-Public Use
  Company Number: US-ASTRAZENECA-2006UW07996

PATIENT
  Age: 488 Month
  Sex: Female
  Weight: 95.5 kg

DRUGS (3)
  1. SEROQUEL [Suspect]
     Indication: SLEEP DISORDER
     Route: 048
     Dates: start: 20050401
  2. CLOZARIL [Concomitant]
  3. RISPERDAL [Concomitant]

REACTIONS (1)
  - DIABETES MELLITUS [None]
